FAERS Safety Report 5993619-8 (Version None)
Quarter: 2008Q4

REPORT INFORMATION
  Report Type: 
  Country: None (occurrence: None)
  Receive Date: 20081212
  Receipt Date: 20081208
  Transmission Date: 20090506
  Serious: Yes (Death, Hospitalization, Other)
  Sender: FDA-Public Use
  Company Number: PHNU2007DE03382

PATIENT
  Sex: Female

DRUGS (1)
  1. SYNTOCINON [Suspect]
     Indication: LABOUR STIMULATION
     Dosage: 2 PUFFS
     Route: 045
     Dates: start: 20070919, end: 20070919

REACTIONS (6)
  - CAESAREAN SECTION [None]
  - DYSPNOEA [None]
  - HEART RATE DECREASED [None]
  - HYPOXIA [None]
  - INTRA-UTERINE DEATH [None]
  - TACHYCARDIA [None]
